FAERS Safety Report 23836741 (Version 1)
Quarter: 2024Q2

REPORT INFORMATION
  Report Type: Spontaneous
  Country: CN (occurrence: CN)
  Receive Date: 20240509
  Receipt Date: 20240509
  Transmission Date: 20240716
  Serious: Yes (Other)
  Sender: FDA-Public Use
  Company Number: CN-FreseniusKabi-FK202406910

PATIENT
  Age: 99 Year
  Sex: Male

DRUGS (9)
  1. EGG PHOSPHOLIPIDS\GLYCERIN\MEDIUM-CHAIN TRIGLYCERIDES\SOYBEAN OIL [Suspect]
     Active Substance: EGG PHOSPHOLIPIDS\GLYCERIN\MEDIUM-CHAIN TRIGLYCERIDES\SOYBEAN OIL
     Indication: Nutritional supplementation
     Dosage: FOA: INJECTION?ROA: INTRAVENOUS DRIP (IM)
     Dates: start: 20240420, end: 20240424
  2. DEXTROSE [Suspect]
     Active Substance: DEXTROSE\DEXTROSE MONOHYDRATE
     Indication: Nutritional supplementation
     Dosage: FOA: INJECTION?ROA: INTRAVENOUS DRIP (IM)
     Dates: start: 20240420, end: 20240424
  3. POTASSIUM PHOSPHATE, DIBASIC\POTASSIUM PHOSPHATE, MONOBASIC [Suspect]
     Active Substance: POTASSIUM PHOSPHATE, DIBASIC\POTASSIUM PHOSPHATE, MONOBASIC
     Indication: Nutritional supplementation
     Dosage: FOA: INJECTION?ROA: INTRAVENOUS DRIP (IM)
     Dates: start: 20240420, end: 20240424
  4. AMINO ACIDS, SOURCE UNSPECIFIED [Suspect]
     Active Substance: AMINO ACIDS, SOURCE UNSPECIFIED
     Indication: Nutritional supplementation
     Dosage: FOA: INJECTION?ROA: INTRAVENOUS DRIP (IM)
     Dates: start: 20240420, end: 20240424
  5. POTASSIUM CHLORIDE [Suspect]
     Active Substance: POTASSIUM CHLORIDE
     Indication: Nutritional supplementation
     Dosage: FOA: INJECTION?ROA: INTRAVENOUS DRIP (IM)
     Dates: start: 20240420, end: 20240424
  6. VITAMINS [Suspect]
     Active Substance: VITAMINS
     Indication: Nutritional supplementation
     Dosage: FOA: INJECTION?ROA: INTRAVENOUS DRIP (IM)
     Dates: start: 20240420, end: 20240426
  7. VITAMINS [Suspect]
     Active Substance: VITAMINS
     Indication: Nutritional supplementation
     Dosage: FOA: INJECTION?ROA: INTRAVENOUS DRIP (IM)
     Dates: start: 20240420, end: 20240424
  8. MAGNESIUM SULFATE [Suspect]
     Active Substance: MAGNESIUM SULFATE\MAGNESIUM SULFATE HEPTAHYDRATE
     Indication: Nutritional supplementation
     Dosage: FOA: INJECTION?ROA: INTRAVENOUS DRIP (IM)
     Dates: start: 20240420, end: 20240424
  9. DEXTROSE\SODIUM CHLORIDE [Suspect]
     Active Substance: DEXTROSE\SODIUM CHLORIDE
     Indication: Nutritional supplementation
     Dosage: FOA: INJECTION?ROA: INTRAVENOUS DRIP (IM)
     Dates: start: 20240420, end: 20240424

REACTIONS (5)
  - Temperature intolerance [Recovering/Resolving]
  - Chills [Recovering/Resolving]
  - Vomiting [Recovering/Resolving]
  - Tachypnoea [Recovering/Resolving]
  - Pyrexia [Recovering/Resolving]

NARRATIVE: CASE EVENT DATE: 20240424
